FAERS Safety Report 19835393 (Version 1)
Quarter: 2021Q3

REPORT INFORMATION
  Report Type: Spontaneous
  Country: BR (occurrence: BR)
  Receive Date: 20210914
  Receipt Date: 20210914
  Transmission Date: 20211014
  Serious: Yes (Hospitalization, Other)
  Sender: FDA-Public Use
  Company Number: BR-BIOGEN-2021BI01047014

PATIENT
  Age: 30 Year
  Sex: Female

DRUGS (6)
  1. PRIMID [Concomitant]
     Indication: EPILEPSY
     Route: 065
  2. PREGABALIN. [Concomitant]
     Active Substance: PREGABALIN
     Indication: PAIN
     Route: 065
  3. RIVOTRIL [Concomitant]
     Active Substance: CLONAZEPAM
     Indication: SLEEP DISORDER
     Route: 065
  4. DULOXETINE. [Concomitant]
     Active Substance: DULOXETINE
     Indication: DEPRESSION
     Route: 065
  5. TECFIDERA [Suspect]
     Active Substance: DIMETHYL FUMARATE
     Indication: MULTIPLE SCLEROSIS
     Route: 048
     Dates: start: 20201014
  6. TECFIDERA [Suspect]
     Active Substance: DIMETHYL FUMARATE
     Dosage: MAINTENANCE DOSE
     Route: 048
     Dates: start: 2020

REACTIONS (11)
  - Sensory loss [Unknown]
  - Bradyphrenia [Not Recovered/Not Resolved]
  - Hemiplegia [Unknown]
  - Pain [Not Recovered/Not Resolved]
  - Epilepsy [Recovered/Resolved]
  - Muscular weakness [Unknown]
  - Multiple sclerosis [Unknown]
  - Hypertension [Unknown]
  - Syncope [Recovered/Resolved]
  - Headache [Not Recovered/Not Resolved]
  - Hemiparaesthesia [Not Recovered/Not Resolved]

NARRATIVE: CASE EVENT DATE: 202105
